FAERS Safety Report 23444382 (Version 1)
Quarter: 2024Q1

REPORT INFORMATION
  Report Type: Spontaneous
  Country: US (occurrence: US)
  Receive Date: 20240125
  Receipt Date: 20240125
  Transmission Date: 20240409
  Serious: No
  Sender: FDA-Public Use
  Company Number: US-SA-SAC20240124000200

PATIENT
  Age: 54 Year
  Sex: Female
  Weight: 69.388 kg

DRUGS (1)
  1. DUPIXENT [Suspect]
     Active Substance: DUPILUMAB
     Indication: Neurodermatitis
     Dosage: 300 MG, QOW
     Route: 058

REACTIONS (3)
  - Nodule [Not Recovered/Not Resolved]
  - Skin ulcer [Not Recovered/Not Resolved]
  - Rash [Not Recovered/Not Resolved]
